FAERS Safety Report 4356951-X (Version None)
Quarter: 2004Q2

REPORT INFORMATION
  Report Type: 
  Country: None (occurrence: None)
  Receive Date: 20040507
  Receipt Date: 20040503
  Transmission Date: 20050107
  Serious: Yes (Death)
  Sender: FDA-Public Use
  Company Number: DE-JNJFOC-20040201275

PATIENT
  Sex: Male

DRUGS (1)
  1. DURAGESIC [Suspect]
     Indication: BACK PAIN
     Dosage: TRANSDERMAL
     Route: 062

REACTIONS (2)
  - ARRHYTHMIA [None]
  - CONDITION AGGRAVATED [None]
